FAERS Safety Report 20638001 (Version 2)
Quarter: 2022Q1

REPORT INFORMATION
  Report Type: Spontaneous
  Country: AU (occurrence: None)
  Receive Date: 20220325
  Receipt Date: 20220330
  Transmission Date: 20220423
  Serious: Yes (Disabling, Other)
  Sender: FDA-Public Use
  Company Number: 2022A120695

PATIENT
  Age: 72 Year
  Sex: Female

DRUGS (5)
  1. NEXIUM [Suspect]
     Active Substance: ESOMEPRAZOLE MAGNESIUM
     Indication: Abdominal pain upper
     Route: 048
     Dates: start: 2016, end: 202203
  2. NEXIUM [Suspect]
     Active Substance: ESOMEPRAZOLE MAGNESIUM
     Indication: Dyspepsia
     Route: 048
     Dates: start: 2016, end: 202203
  3. PLAQUENEL [Concomitant]
     Indication: Systemic lupus erythematosus
     Dates: start: 2018
  4. CALCIUM [Concomitant]
     Active Substance: CALCIUM
     Indication: Osteopenia
     Dates: start: 2019
  5. THYROXINE [Concomitant]
     Active Substance: LEVOTHYROXINE
     Indication: Autoimmune thyroiditis
     Dosage: 150 MC
     Dates: start: 1998

REACTIONS (3)
  - Neuropathy peripheral [Unknown]
  - Colitis microscopic [Unknown]
  - Diarrhoea [Recovered/Resolved]

NARRATIVE: CASE EVENT DATE: 20170101
